FAERS Safety Report 7885631-9 (Version None)
Quarter: 2011Q4

REPORT INFORMATION
  Report Type: 
  Country: None (occurrence: None)
  Receive Date: 20111102
  Receipt Date: 20110627
  Transmission Date: 20120403
  Serious: No
  Sender: FDA-Public Use
  Company Number: US-AMGEN-USASP2011032700

PATIENT
  Age: 33 Year
  Sex: Female
  Weight: 58.957 kg

DRUGS (4)
  1. LUXIQ [Concomitant]
     Dosage: 0.12 %, UNK
  2. PRENATAL                           /00231801/ [Concomitant]
  3. LOESTRIN 1.5/30 [Concomitant]
  4. ENBREL [Suspect]
     Indication: PRODUCT USED FOR UNKNOWN INDICATION
     Dosage: 50 MG, 2 TIMES/WK

REACTIONS (5)
  - INJECTION SITE SWELLING [None]
  - INJECTION SITE ERYTHEMA [None]
  - NAIL DISORDER [None]
  - INJECTION SITE REACTION [None]
  - INJECTION SITE PRURITUS [None]
